FAERS Safety Report 5736742-5 (Version None)
Quarter: 2008Q2

REPORT INFORMATION
  Report Type: 
  Country: None (occurrence: None)
  Receive Date: 20080513
  Receipt Date: 20071129
  Transmission Date: 20081010
  Serious: No
  Sender: FDA-Public Use
  Company Number: US-BOEHRINGER INGELHEIM GMBH, GERMANY-2006-BP-14621BP

PATIENT
  Sex: Male
  Weight: 75 kg

DRUGS (10)
  1. MIRAPEX [Suspect]
     Indication: PARKINSON'S DISEASE
     Route: 048
     Dates: start: 19991221, end: 20031022
  2. SINEMET CR [Concomitant]
     Indication: PARKINSON'S DISEASE
     Dates: start: 19970708
  3. PERMAX [Concomitant]
     Indication: PARKINSON'S DISEASE
     Dates: start: 19970708
  4. SINEMET [Concomitant]
     Indication: PARKINSON'S DISEASE
     Dates: start: 19950101
  5. CARBIDOPA AND LEVODOPA [Concomitant]
     Indication: PARKINSON'S DISEASE
     Dates: start: 20020211
  6. REQUIP [Concomitant]
     Indication: PARKINSON'S DISEASE
     Dates: start: 20031029
  7. ELDEPRYL [Concomitant]
     Indication: PARKINSON'S DISEASE
  8. COMTAN [Concomitant]
     Indication: PARKINSON'S DISEASE
     Dates: start: 20040106
  9. ZOLOFT [Concomitant]
     Indication: DEPRESSION
     Dates: start: 19981118
  10. PAXIL [Concomitant]
     Indication: DEPRESSION
     Dates: start: 19991209

REACTIONS (2)
  - OBSESSIVE-COMPULSIVE DISORDER [None]
  - PATHOLOGICAL GAMBLING [None]
